FAERS Safety Report 15451679 (Version 1)
Quarter: 2018Q4

REPORT INFORMATION
  Report Type: Spontaneous
  Country: BE (occurrence: BE)
  Receive Date: 20181001
  Receipt Date: 20181001
  Transmission Date: 20190204
  Serious: Yes (Life-Threatening, Hospitalization, Other)
  Sender: FDA-Public Use
  Company Number: BE-MYLANLABS-2018M1069873

PATIENT
  Age: 38 Year
  Sex: Female

DRUGS (2)
  1. QUETIAPINE. [Suspect]
     Active Substance: QUETIAPINE
     Indication: SCHIZOPHRENIA
     Dosage: 200 MG, QD
     Route: 065
  2. ESCITALOPRAM [Concomitant]
     Active Substance: ESCITALOPRAM OXALATE
     Indication: DEPRESSION
     Route: 065

REACTIONS (8)
  - Pancreatitis [Unknown]
  - Sarcopenia [Unknown]
  - Respiratory failure [Unknown]
  - Hypertriglyceridaemia [Recovered/Resolved]
  - Metabolic acidosis [Unknown]
  - Thrombotic thrombocytopenic purpura [Recovering/Resolving]
  - Haemodynamic instability [Unknown]
  - Delirium [Unknown]
